FAERS Safety Report 5411403-0 (Version None)
Quarter: 2007Q3

REPORT INFORMATION
  Report Type: 
  Country: None (occurrence: None)
  Receive Date: 20070810
  Receipt Date: 20070730
  Transmission Date: 20080115
  Serious: Yes (Other)
  Sender: FDA-Public Use
  Company Number: US-JNJFOC-20070800234

PATIENT
  Sex: Female
  Weight: 88.91 kg

DRUGS (4)
  1. TYLENOL (CAPLET) [Suspect]
     Indication: HEADACHE
  2. TYLENOL (CAPLET) [Suspect]
     Indication: BACK PAIN
  3. TYLENOL ARTHRITIS [Concomitant]
     Indication: BACK PAIN
  4. DURAGESIC-100 [Concomitant]
     Indication: BACK PAIN

REACTIONS (2)
  - DYSGEUSIA [None]
  - PHARMACEUTICAL PRODUCT COUNTERFEIT [None]
